FAERS Safety Report 15148608 (Version 1)
Quarter: 2018Q3

REPORT INFORMATION
  Report Type: Spontaneous
  Country: RU (occurrence: RU)
  Receive Date: 20180716
  Receipt Date: 20180716
  Transmission Date: 20181010
  Serious: Yes (Life-Threatening, Hospitalization)
  Sender: FDA-Public Use
  Company Number: RU-ACTELION-A-CH2018-175297

PATIENT
  Age: 58 Year
  Sex: Female

DRUGS (4)
  1. CARDIOMAGNYL [Concomitant]
     Active Substance: ASPIRIN\MAGNESIUM HYDROXIDE
     Indication: THROMBOSIS PROPHYLAXIS
     Dosage: 75 MG, QD
     Route: 048
  2. TRIGRIM [Concomitant]
     Indication: CARDIAC FAILURE
     Dosage: 10 MG, QD
     Route: 048
  3. OPSUMIT [Suspect]
     Active Substance: MACITENTAN
     Indication: PULMONARY ARTERIAL HYPERTENSION
     Dosage: 10 MG, QD
     Route: 048
     Dates: start: 201805, end: 201807
  4. VEROSPIRON [Concomitant]
     Active Substance: SPIRONOLACTONE
     Indication: CARDIAC FAILURE
     Dosage: 50 MG, QD
     Route: 048

REACTIONS (4)
  - Oedema [Unknown]
  - Pulmonary arterial hypertension [Unknown]
  - Exercise tolerance decreased [Unknown]
  - Condition aggravated [Unknown]

NARRATIVE: CASE EVENT DATE: 201806
